FAERS Safety Report 9602029 (Version 1)
Quarter: 2013Q4

REPORT INFORMATION
  Report Type: Report from Study
  Country: AR (occurrence: AR)
  Receive Date: 20131007
  Receipt Date: 20131007
  Transmission Date: 20140711
  Serious: Yes (Other)
  Sender: FDA-Public Use
  Company Number: PHHY2013AR111524

PATIENT
  Age: 75 Year
  Sex: Male

DRUGS (2)
  1. DIOVAN [Suspect]
     Indication: HYPERTENSION
     Dosage: 160 MG, PER DAY
     Route: 048
     Dates: start: 2012, end: 201306
  2. DIOVAN [Suspect]
     Dosage: 160 MG, PER DAY
     Route: 048

REACTIONS (1)
  - Oesophageal carcinoma [Recovered/Resolved]
